FAERS Safety Report 9094631 (Version 2)
Quarter: 2013Q1

REPORT INFORMATION
  Report Type: Report from Study
  Country: JP (occurrence: JP)
  Receive Date: 20130219
  Receipt Date: 20130301
  Transmission Date: 20140127
  Serious: Yes (Hospitalization)
  Sender: FDA-Public Use
  Company Number: JP-PFIZER INC-2013051519

PATIENT
  Age: 16 Year
  Sex: Male
  Weight: 47.6 kg

DRUGS (7)
  1. NO SUBJECT DRUG [Suspect]
     Indication: HYPERTONIC BLADDER
     Dosage: NO DOSE GIVEN
  2. NO SUBJECT DRUG [Suspect]
     Dosage: NO DOSE GIVEN
  3. CEFCAPENE PIVOXIL HYDROCHLORIDE [Suspect]
     Indication: URINARY TRACT INFECTION
     Dosage: 100 MG, 3X/DAY
     Route: 048
     Dates: start: 20130202, end: 20130206
  4. XYLOCAINE JELLY [Concomitant]
     Indication: PAIN PROPHYLAXIS
     Dosage: ADEQUATE DOSE AS NEEDED
     Route: 061
     Dates: start: 19990523
  5. HIBITANE [Concomitant]
     Indication: INFECTION PROPHYLAXIS
     Dosage: ADEQUATE DOSE AS NEEDED
     Route: 061
     Dates: start: 19990523
  6. POLLAKISU [Concomitant]
     Indication: HYPERTONIC BLADDER
     Dosage: 6 MG, DAILY
     Route: 048
     Dates: start: 20120816, end: 20130128
  7. BIOLACTIS [Concomitant]
     Indication: CONSTIPATION
     Dosage: 2 G, DAILY
     Route: 048
     Dates: start: 20000126, end: 20130128

REACTIONS (2)
  - Haematochezia [Recovering/Resolving]
  - Colitis ulcerative [Recovering/Resolving]
